FAERS Safety Report 19689684 (Version 1)
Quarter: 2021Q3

REPORT INFORMATION
  Report Type: Spontaneous
  Country: FR (occurrence: FR)
  Receive Date: 20210812
  Receipt Date: 20210812
  Transmission Date: 20211014
  Serious: Yes (Other)
  Sender: FDA-Public Use
  Company Number: FR-SUN PHARMACEUTICAL INDUSTRIES LTD-2021RR-307663

PATIENT
  Age: 71 Year
  Sex: Female

DRUGS (5)
  1. DOXORUBICIN [Suspect]
     Active Substance: DOXORUBICIN
     Indication: UTERINE NEOPLASM
     Dosage: UNK, 2 CYCLES
     Route: 065
     Dates: start: 201207
  2. GEMCITABINE. [Suspect]
     Active Substance: GEMCITABINE
     Indication: UTERINE NEOPLASM
     Dosage: UNK, 2 COURSES
     Route: 065
  3. GEMCITABINE. [Suspect]
     Active Substance: GEMCITABINE
     Dosage: UNK
     Route: 065
  4. TRABECTEDIN [Suspect]
     Active Substance: TRABECTEDIN
     Indication: UTERINE NEOPLASM
     Dosage: UNK, MAINTAINED FOR 17 CYCLES
     Route: 065
     Dates: start: 201210, end: 201311
  5. DACARBAZINE. [Suspect]
     Active Substance: DACARBAZINE
     Indication: UTERINE NEOPLASM
     Dosage: UNK, 2 COURSES
     Route: 065

REACTIONS (3)
  - Haematotoxicity [Unknown]
  - Therapeutic product effect incomplete [Unknown]
  - Disease progression [Unknown]
